FAERS Safety Report 7440253-9 (Version None)
Quarter: 2011Q2

REPORT INFORMATION
  Report Type: 
  Country: None (occurrence: None)
  Receive Date: 20110427
  Receipt Date: 20100723
  Transmission Date: 20111010
  Serious: No
  Sender: FDA-Public Use
  Company Number: US-PFIZER INC-2010093485

PATIENT
  Sex: Female

DRUGS (2)
  1. ZITHROMAX [Suspect]
     Indication: SINUSITIS
     Dosage: 500 MG, UNK
     Route: 048
     Dates: start: 20100722, end: 20100723
  2. NASONEX [Concomitant]
     Dosage: UNK
     Route: 045

REACTIONS (3)
  - NAUSEA [None]
  - ADVERSE DRUG REACTION [None]
  - ABDOMINAL PAIN [None]
